FAERS Safety Report 12630499 (Version 2)
Quarter: 2017Q4

REPORT INFORMATION
  Report Type: Spontaneous
  Country: US (occurrence: US)
  Receive Date: 20160808
  Receipt Date: 20171227
  Transmission Date: 20180320
  Serious: No
  Sender: FDA-Public Use
  Company Number: US-PFIZER INC-2016342619

PATIENT
  Age: 63 Year
  Sex: Female

DRUGS (10)
  1. PROCARDIA [Suspect]
     Active Substance: NIFEDIPINE
     Dosage: UNK
  2. IODINE. [Suspect]
     Active Substance: IODINE
     Dosage: UNK
  3. HEPARIN SODIUM. [Suspect]
     Active Substance: HEPARIN SODIUM
     Dosage: UNK
  4. OXYCODONE [Suspect]
     Active Substance: OXYCODONE
     Dosage: UNK
  5. CODEINE [Suspect]
     Active Substance: CODEINE
     Dosage: UNK
  6. BENADRYL [Suspect]
     Active Substance: DIPHENHYDRAMINE HYDROCHLORIDE
     Dosage: UNK
  7. TEGADERM AG MESH [Suspect]
     Active Substance: 2-HYDROXYETHYL METHACRYLATE
     Dosage: UNK
  8. BETADINE [Suspect]
     Active Substance: POVIDONE-IODINE
     Dosage: UNK
  9. NEORAL [Suspect]
     Active Substance: CYCLOSPORINE
     Dosage: UNK
  10. CLONIDINE. [Suspect]
     Active Substance: CLONIDINE
     Dosage: UNK

REACTIONS (1)
  - Drug hypersensitivity [Unknown]
